FAERS Safety Report 13648172 (Version 1)
Quarter: 2017Q2

REPORT INFORMATION
  Report Type: Spontaneous
  Country: ES (occurrence: ES)
  Receive Date: 20170613
  Receipt Date: 20170613
  Transmission Date: 20170830
  Serious: Yes (Other)
  Sender: FDA-Public Use
  Company Number: ES-SA-2017SA100394

PATIENT
  Age: 49 Year
  Sex: Male

DRUGS (1)
  1. LEMTRADA [Suspect]
     Active Substance: ALEMTUZUMAB
     Indication: MULTIPLE SCLEROSIS
     Dosage: FECHAS FICTICIAS A EFECTOS DE SU CODIFICACION
     Route: 041
     Dates: start: 2017

REACTIONS (1)
  - Acute disseminated encephalomyelitis [Recovered/Resolved]

NARRATIVE: CASE EVENT DATE: 2017
